FAERS Safety Report 24907325 (Version 1)
Quarter: 2025Q1

REPORT INFORMATION
  Report Type: Spontaneous
  Country: US (occurrence: US)
  Receive Date: 20250130
  Receipt Date: 20250130
  Transmission Date: 20250408
  Serious: Yes (Other)
  Sender: NOVO NORDISK
  Company Number: US-NOVOPROD-1320427

PATIENT
  Sex: Female

DRUGS (2)
  1. NOVOLOG [Suspect]
     Active Substance: INSULIN ASPART
     Indication: Product used for unknown indication
     Route: 058
  2. LANTUS [Suspect]
     Active Substance: INSULIN GLARGINE
     Indication: Product used for unknown indication

REACTIONS (7)
  - Multiple organ dysfunction syndrome [Unknown]
  - Seizure [Unknown]
  - Spinal column injury [Unknown]
  - Arthritis [Unknown]
  - Blood pressure increased [Unknown]
  - Amnesia [Not Recovered/Not Resolved]
  - Hypersensitivity [Unknown]
